FAERS Safety Report 4375069-3 (Version None)
Quarter: 2004Q2

REPORT INFORMATION
  Report Type: 
  Country: None (occurrence: None)
  Receive Date: 20040603
  Receipt Date: 20040513
  Transmission Date: 20050107
  Serious: Yes (Hospitalization)
  Sender: FDA-Public Use
  Company Number: EWC040539262

PATIENT
  Age: 43 Year
  Sex: Female

DRUGS (3)
  1. XIGRIS [Suspect]
     Indication: MENINGOCOCCAL SEPSIS
     Dosage: 24 UG/KG/HR
     Dates: start: 20040513, end: 20040513
  2. CEPHALEXIN [Concomitant]
  3. CORTICOIDS [Concomitant]

REACTIONS (3)
  - COAGULOPATHY [None]
  - FASCIOTOMY [None]
  - PLATELET COUNT DECREASED [None]
